FAERS Safety Report 8905274 (Version 2)
Quarter: 2012Q4

REPORT INFORMATION
  Report Type: 
  Country: JP (occurrence: JP)
  Receive Date: 20121112
  Receipt Date: 20121213
  Transmission Date: 20130627
  Serious: Yes (Other)
  Sender: FDA-Public Use
  Company Number: JP-BAYER-2012-093084

PATIENT
  Age: 65 Year
  Sex: Male

DRUGS (5)
  1. NEXAVAR [Suspect]
     Indication: CARCINOMA HEPATOCELLULAR
     Dosage: 400 mg, BID
     Route: 048
     Dates: start: 20120824, end: 20121005
  2. NEXAVAR [Suspect]
     Indication: CARCINOMA HEPATOCELLULAR
     Dosage: 400 mg, QD
     Dates: start: 20121026
  3. AMLODIPINE [Concomitant]
     Route: 048
  4. URSO [Concomitant]
     Dosage: UNK
     Route: 048
     Dates: start: 20121026
  5. GLYCYRON [Concomitant]
     Dosage: UNK
     Dates: start: 20121026

REACTIONS (2)
  - Hepatic function abnormal [Recovering/Resolving]
  - Hypertension [Not Recovered/Not Resolved]
